FAERS Safety Report 16289355 (Version 3)
Quarter: 2019Q2

REPORT INFORMATION
  Report Type: Spontaneous
  Country: US (occurrence: US)
  Receive Date: 20190509
  Receipt Date: 20190618
  Transmission Date: 20190711
  Serious: No
  Sender: FDA-Public Use
  Company Number: US-GW PHARMA-201903USGW0669

PATIENT

DRUGS (1)
  1. EPIDIOLEX [Suspect]
     Active Substance: CANNABIDIOL
     Indication: SEIZURE
     Dosage: 250 MILLIGRAM, BID
     Route: 048
     Dates: start: 20190219

REACTIONS (3)
  - Vision blurred [Unknown]
  - Decreased appetite [Unknown]
  - Hypersomnia [Unknown]

NARRATIVE: CASE EVENT DATE: 2019
